FAERS Safety Report 7266262-0 (Version None)
Quarter: 2011Q1

REPORT INFORMATION
  Report Type: 
  Country: None (occurrence: None)
  Receive Date: 20110131
  Receipt Date: 20110131
  Transmission Date: 20110831
  Serious: Yes (Life-Threatening, Other)
  Sender: FDA-Public Use
  Company Number: US-ELI_LILLY_AND_COMPANY-US201011002140

PATIENT

DRUGS (1)
  1. ZYPREXA RELPREVV [Suspect]
     Dosage: 405 MG, MONTHLY (1/M)
     Route: 030

REACTIONS (3)
  - DROOLING [None]
  - SOMNOLENCE [None]
  - DYSARTHRIA [None]
